FAERS Safety Report 5143199-4 (Version None)
Quarter: 2006Q4

REPORT INFORMATION
  Report Type: 
  Country: None (occurrence: None)
  Receive Date: 20061031
  Receipt Date: 20061031
  Transmission Date: 20070319
  Serious: Yes (Hospitalization)
  Sender: FDA-Public Use
  Company Number: None

PATIENT
  Age: 60 Year
  Sex: Male
  Weight: 92.0802 kg

DRUGS (23)
  1. OXANDRIN [Suspect]
     Indication: WEIGHT DECREASED
     Dosage: 10MG BID PO
     Route: 048
     Dates: start: 20060912
  2. CIALIS [Concomitant]
  3. REMERON [Concomitant]
  4. ASPIRIN [Concomitant]
  5. PROTONIX [Concomitant]
  6. MOROPHINE [Concomitant]
  7. REQUIP [Concomitant]
  8. IBUPROFEN [Concomitant]
  9. MULTI-VITAMIN [Concomitant]
  10. KYTRIL [Concomitant]
  11. LEXAPRO [Concomitant]
  12. PROMETHAZINE [Concomitant]
  13. COMPAZINE [Concomitant]
  14. STOOL SOFTENER [Concomitant]
  15. CYANOCOBALAMIN [Concomitant]
  16. FLUOROURACIL [Concomitant]
  17. LEUCOVORIN CALCIUM [Concomitant]
  18. HC SUPP [Concomitant]
  19. POTASSIUM ACETATE [Concomitant]
  20. ELOXATIN [Concomitant]
  21. ALOXI [Concomitant]
  22. DECADRON [Concomitant]
  23. MAGNESIUM [Concomitant]

REACTIONS (4)
  - ASTHENIA [None]
  - CONSTIPATION [None]
  - FATIGUE [None]
  - NAUSEA [None]
